FAERS Safety Report 7628702-4 (Version None)
Quarter: 2011Q3

REPORT INFORMATION
  Report Type: 
  Country: None (occurrence: None)
  Receive Date: 20110714
  Receipt Date: 20110629
  Transmission Date: 20111222
  Serious: Yes (Hospitalization)
  Sender: FDA-Public Use
  Company Number: 2011PV000034

PATIENT
  Age: 37 Year
  Sex: Female

DRUGS (6)
  1. METHOTREXATE [Suspect]
     Dosage: 3000 MG/M**2; IV
     Route: 042
     Dates: start: 20090311, end: 20100120
  2. DEPOCYT [Suspect]
     Dosage: 50MG; ; INTH
     Route: 011
     Dates: start: 20090411, end: 20100120
  3. RITUXIMAB (RITUXIMAB) [Suspect]
     Dosage: 375MG/ M**2; IV
     Route: 042
     Dates: start: 20090211, end: 20100119
  4. FOLIC ACID [Suspect]
     Dosage: 200MG/M**2; IV
     Route: 042
     Dates: start: 20090411, end: 20100125
  5. MEDROL [Suspect]
     Dosage: 96MG; ; IV
     Route: 042
     Dates: start: 20090311, end: 20100125
  6. CYTOSAR-U [Suspect]
     Dosage: 100MG/M**2; IV
     Route: 042
     Dates: start: 20090411, end: 20100124

REACTIONS (2)
  - FEBRILE NEUTROPENIA [None]
  - DIABETIC KETOACIDOSIS [None]
